FAERS Safety Report 11359338 (Version 2)
Quarter: 2015Q3

REPORT INFORMATION
  Report Type: Spontaneous
  Country: US (occurrence: US)
  Receive Date: 20150807
  Receipt Date: 20150901
  Transmission Date: 20151125
  Serious: Yes (Other)
  Sender: FDA-Public Use
  Company Number: US-PFIZER INC-2015257645

PATIENT
  Age: 39 Year
  Sex: Male

DRUGS (4)
  1. CARMUSTINE [Suspect]
     Active Substance: CARMUSTINE
     Indication: LYMPHOCYTIC LYMPHOMA
     Dosage: 300 MG/M2, Q 12 H ON DAY -4
  2. ETOPOSIDE. [Suspect]
     Active Substance: ETOPOSIDE
     Indication: LYMPHOCYTIC LYMPHOMA
     Dosage: 400 MG/M2, Q 12 H DAYS -7 TO -5
  3. CYCLOPHOSPHAMIDE. [Suspect]
     Active Substance: CYCLOPHOSPHAMIDE
     Indication: LYMPHOCYTIC LYMPHOMA
     Dosage: 1800 MG/M2, DAYS -7 TO -4
  4. DACARBAZINE. [Suspect]
     Active Substance: DACARBAZINE
     Indication: LYMPHOCYTIC LYMPHOMA
     Dosage: 3900 MG/M2, ON DAY -3

REACTIONS (1)
  - Pulmonary veno-occlusive disease [Unknown]
